FAERS Safety Report 23197396 (Version 1)
Quarter: 2023Q4

REPORT INFORMATION
  Report Type: Spontaneous
  Country: US (occurrence: US)
  Receive Date: 20231117
  Receipt Date: 20231117
  Transmission Date: 20240110
  Serious: Yes (Other)
  Sender: FDA-Public Use
  Company Number: US-SUN PHARMACEUTICAL INDUSTRIES LTD-2023R1-417728

PATIENT
  Age: 23 Year
  Sex: Male

DRUGS (19)
  1. LITHIUM [Suspect]
     Active Substance: LITHIUM
     Indication: Mood altered
     Dosage: UNK
     Route: 065
  2. LITHIUM [Suspect]
     Active Substance: LITHIUM
     Indication: Agitation
  3. PROPOFOL [Concomitant]
     Active Substance: PROPOFOL
     Indication: Mood altered
     Dosage: UNK
     Route: 065
  4. PROPOFOL [Concomitant]
     Active Substance: PROPOFOL
     Indication: Agitation
  5. KETAMINE [Concomitant]
     Active Substance: KETAMINE
     Indication: Mood altered
     Dosage: UNK
     Route: 065
  6. KETAMINE [Concomitant]
     Active Substance: KETAMINE
     Indication: Agitation
  7. VALPROATE [Concomitant]
     Active Substance: VALPROIC ACID
     Indication: Mood altered
     Dosage: UNK
     Route: 065
  8. VALPROATE [Concomitant]
     Active Substance: VALPROIC ACID
     Indication: Agitation
  9. PALIPERIDONE [Concomitant]
     Active Substance: PALIPERIDONE
     Indication: Mood altered
     Dosage: UNK
     Route: 065
  10. PALIPERIDONE [Concomitant]
     Active Substance: PALIPERIDONE
     Indication: Agitation
  11. QUETIAPINE [Concomitant]
     Active Substance: QUETIAPINE
     Indication: Mood altered
     Dosage: UNK
     Route: 065
  12. QUETIAPINE [Concomitant]
     Active Substance: QUETIAPINE
     Indication: Agitation
  13. GUANFACINE [Concomitant]
     Active Substance: GUANFACINE
     Indication: Mood altered
     Dosage: UNK
     Route: 065
  14. GUANFACINE [Concomitant]
     Active Substance: GUANFACINE
     Indication: Agitation
  15. LORAZEPAM [Concomitant]
     Active Substance: LORAZEPAM
     Indication: Mood altered
     Dosage: UNK
     Route: 065
  16. LORAZEPAM [Concomitant]
     Active Substance: LORAZEPAM
     Indication: Agitation
  17. HALOPERIDOL [Concomitant]
     Active Substance: HALOPERIDOL
     Indication: Mood altered
     Dosage: UNK
     Route: 065
  18. HALOPERIDOL [Concomitant]
     Active Substance: HALOPERIDOL
     Indication: Agitation
  19. HALOPERIDOL [Concomitant]
     Active Substance: HALOPERIDOL
     Indication: Agitation

REACTIONS (1)
  - Diabetes insipidus [Unknown]
